FAERS Safety Report 4458130-4 (Version None)
Quarter: 2004Q3

REPORT INFORMATION
  Report Type: 
  Country: None (occurrence: None)
  Receive Date: 20040924
  Receipt Date: 20040705
  Transmission Date: 20050211
  Serious: Yes (Other)
  Sender: FDA-Public Use
  Company Number: FR-GLAXOSMITHKLINE-B0338092A

PATIENT
  Age: 32 Year
  Sex: Female

DRUGS (1)
  1. IMIGRANE [Suspect]
     Indication: MIGRAINE
     Route: 055
     Dates: start: 20040101

REACTIONS (3)
  - DYSAESTHESIA [None]
  - LARYNGEAL PAIN [None]
  - MALAISE [None]
